FAERS Safety Report 15437547 (Version 1)
Quarter: 2018Q3

REPORT INFORMATION
  Report Type: Spontaneous
  Country: US (occurrence: US)
  Receive Date: 20180927
  Receipt Date: 20180927
  Transmission Date: 20181010
  Serious: No
  Sender: FDA-Public Use
  Company Number: US-AMGEN-USASP2018012996

PATIENT
  Age: 74 Year
  Sex: Male

DRUGS (13)
  1. HCTZ [Concomitant]
     Active Substance: HYDROCHLOROTHIAZIDE
  2. DULOXETINE. [Concomitant]
     Active Substance: DULOXETINE
  3. PODIAPN [Concomitant]
     Active Substance: DIETARY SUPPLEMENT
  4. BENAZEPRIL [Concomitant]
     Active Substance: BENAZEPRIL HYDROCHLORIDE
  5. IBUPROFEN. [Concomitant]
     Active Substance: IBUPROFEN
  6. CALCIUM [Concomitant]
     Active Substance: CALCIUM
  7. VITAMINS [Concomitant]
     Active Substance: VITAMINS
  8. FIRMAGON [Concomitant]
     Active Substance: DEGARELIX ACETATE
  9. ATORVASTATIN [Concomitant]
     Active Substance: ATORVASTATIN
  10. XGEVA [Suspect]
     Active Substance: DENOSUMAB
     Indication: PROSTATE CANCER METASTATIC
     Dosage: UNK
     Route: 065
     Dates: start: 2017
  11. POTASSIUM CHLORIDE. [Concomitant]
     Active Substance: POTASSIUM CHLORIDE
  12. CETIRIZINE [Concomitant]
     Active Substance: CETIRIZINE HYDROCHLORIDE
  13. TYLENOL [Concomitant]
     Active Substance: ACETAMINOPHEN

REACTIONS (1)
  - Endodontic procedure [Unknown]
